FAERS Safety Report 7063830-6 (Version None)
Quarter: 2010Q4

REPORT INFORMATION
  Report Type: 
  Country: None (occurrence: None)
  Receive Date: 20101026
  Receipt Date: 20100908
  Transmission Date: 20110411
  Serious: No
  Sender: FDA-Public Use
  Company Number: US-ABBOTT-10P-163-0670493-00

PATIENT
  Sex: Female
  Weight: 86.26 kg

DRUGS (9)
  1. LUPRON DEPOT [Suspect]
     Indication: ENDOMETRIOSIS
     Dates: start: 20100601
  2. OMEPRAZOLE [Concomitant]
     Indication: GASTROOESOPHAGEAL REFLUX DISEASE
  3. FLUOXETINE [Concomitant]
     Indication: DEPRESSION
  4. TRAZODONE HCL [Concomitant]
     Indication: INSOMNIA
  5. METHOTREXATE [Concomitant]
     Indication: PSORIASIS
  6. METHOTREXATE [Concomitant]
     Indication: PSORIATIC ARTHROPATHY
  7. CHANTIX [Concomitant]
     Indication: SMOKING CESSATION THERAPY
  8. CENTRUM SILVER [Concomitant]
     Indication: VITAMIN SUPPLEMENTATION
  9. IBUPROFEN [Concomitant]
     Indication: ARTHRITIS

REACTIONS (1)
  - MUSCLE SPASMS [None]
